FAERS Safety Report 4323643-2 (Version None)
Quarter: 2004Q1

REPORT INFORMATION
  Report Type: 
  Country: None (occurrence: None)
  Receive Date: 20040323
  Receipt Date: 20040317
  Transmission Date: 20041129
  Serious: Yes (Congenital Anomaly, Other)
  Sender: FDA-Public Use
  Company Number: 163-20785-04030461

PATIENT

DRUGS (1)
  1. THALOMID [Suspect]

REACTIONS (3)
  - LIMB REDUCTION DEFECT [None]
  - MENTAL RETARDATION SEVERITY UNSPECIFIED [None]
  - TRANSMISSION OF DRUG VIA SEMEN [None]
